FAERS Safety Report 12671451 (Version 1)
Quarter: 2016Q3

REPORT INFORMATION
  Report Type: Spontaneous
  Country: GB (occurrence: GB)
  Receive Date: 20160822
  Receipt Date: 20160822
  Transmission Date: 20161109
  Serious: Yes (Hospitalization)
  Sender: FDA-Public Use
  Company Number: GB-TEVA-683613ACC

PATIENT
  Age: 88 Year
  Sex: Male

DRUGS (15)
  1. CHLORAMPHENICOL [Concomitant]
     Active Substance: CHLORAMPHENICOL
  2. SERTRALINE [Suspect]
     Active Substance: SERTRALINE HYDROCHLORIDE
     Indication: DEPRESSION
     Dosage: 50 MILLIGRAM DAILY;
     Route: 048
  3. ISOTARD XL [Concomitant]
  4. RAMIPRIL. [Concomitant]
     Active Substance: RAMIPRIL
  5. DIGOXIN. [Concomitant]
     Active Substance: DIGOXIN
  6. METFORMIN [Concomitant]
     Active Substance: METFORMIN HYDROCHLORIDE
  7. DEXTROGEL [Concomitant]
  8. APIXABAN [Suspect]
     Active Substance: APIXABAN
     Indication: ATRIAL FIBRILLATION
     Dosage: 5 MILLIGRAM DAILY;
     Route: 048
  9. BISOPROLOL [Concomitant]
     Active Substance: BISOPROLOL
  10. FERROUS FUMARATE [Concomitant]
     Active Substance: FERROUS FUMARATE
  11. PARACETAMOL [Concomitant]
     Active Substance: ACETAMINOPHEN
  12. ATORVASTATIN [Concomitant]
     Active Substance: ATORVASTATIN
  13. GLICLAZIDE [Concomitant]
     Active Substance: GLICLAZIDE
  14. OMEPRAZOLE. [Concomitant]
     Active Substance: OMEPRAZOLE
  15. LACTULOSE. [Concomitant]
     Active Substance: LACTULOSE

REACTIONS (7)
  - Abdominal pain [Unknown]
  - Upper gastrointestinal haemorrhage [Recovered/Resolved]
  - Pneumonia aspiration [Unknown]
  - Faeces discoloured [Unknown]
  - Abnormal faeces [Unknown]
  - Haematemesis [Unknown]
  - Dysphagia [Unknown]

NARRATIVE: CASE EVENT DATE: 20160712
